FAERS Safety Report 10842283 (Version 1)
Quarter: 2015Q1

REPORT INFORMATION
  Report Type: Spontaneous
  Country: US (occurrence: US)
  Receive Date: 20150220
  Receipt Date: 20150220
  Transmission Date: 20150721
  Serious: No
  Sender: FDA-Public Use
  Company Number: US-PFIZER INC-2015055474

PATIENT
  Age: 7 Decade
  Sex: Female
  Weight: 72.11 kg

DRUGS (5)
  1. NICOTROL [Suspect]
     Active Substance: NICOTINE
     Indication: SMOKING CESSATION THERAPY
     Dosage: 14 MG, UNK
     Route: 062
  2. NICOTINE. [Suspect]
     Active Substance: NICOTINE
     Dosage: 14 MG, UNK
     Dates: start: 201412
  3. HABITROL [Suspect]
     Active Substance: NICOTINE
     Indication: SMOKING CESSATION THERAPY
     Dosage: 21 MG, DAILY
     Route: 062
     Dates: start: 201412
  4. HABITROL [Suspect]
     Active Substance: NICOTINE
     Dosage: 14 MG, DAILY
     Route: 062
     Dates: start: 201412
  5. NICOTINE. [Suspect]
     Active Substance: NICOTINE
     Indication: SMOKING CESSATION THERAPY
     Dosage: 21 MG, UNK
     Route: 062

REACTIONS (4)
  - Pruritus [Unknown]
  - Skin irritation [Unknown]
  - Nausea [Unknown]
  - Erythema [Unknown]
